FAERS Safety Report 9563368 (Version 2)
Quarter: 2013Q3

REPORT INFORMATION
  Report Type: Report from Study
  Country: DE (occurrence: DE)
  Receive Date: 20130927
  Receipt Date: 20130927
  Transmission Date: 20140515
  Serious: Yes (Hospitalization)
  Sender: FDA-Public Use
  Company Number: DE-ROCHE-1274884

PATIENT
  Age: 62 Year
  Sex: Male
  Weight: 94.6 kg

DRUGS (4)
  1. MYCOPHENOLATE MOFETIL [Suspect]
     Indication: RENAL TRANSPLANT
     Dosage: DATE OF LAST DOSE PRIOR TO SAE 27/NOV/2012
     Route: 048
     Dates: start: 20121014
  2. BASILIXIMAB [Suspect]
     Indication: RENAL TRANSPLANT
     Dosage: DATE OF LAST DOSE PRIOR TO SAE 18/OCT/2012
     Route: 042
     Dates: start: 20121014
  3. TACROLIMUS [Suspect]
     Indication: RENAL TRANSPLANT
     Dosage: DATE OF LAST DOSE PRIOR TO SAE 27/NOV/2012
     Route: 048
     Dates: start: 20121014
  4. PREDNISOLONE [Suspect]
     Indication: RENAL TRANSPLANT
     Dosage: DATE OF LAST DOSE PRIOR TO SAE 27/NOV/2012
     Route: 048
     Dates: start: 20121014

REACTIONS (1)
  - Transplant rejection [Recovered/Resolved]
